FAERS Safety Report 7199829-9 (Version None)
Quarter: 2010Q4

REPORT INFORMATION
  Report Type: 
  Country: None (occurrence: None)
  Receive Date: 20101228
  Receipt Date: 20101216
  Transmission Date: 20110411
  Serious: Yes (Other)
  Sender: FDA-Public Use
  Company Number: GR-ROCHE-749820

PATIENT

DRUGS (2)
  1. INTERFERON ALFA [Suspect]
     Indication: MULTIPLE MYELOMA
     Route: 065
  2. THALIDOMIDE [Suspect]
     Indication: MULTIPLE MYELOMA
     Dosage: FOR 6 MONTHS
     Route: 065

REACTIONS (2)
  - PERIPHERAL SENSORY NEUROPATHY [None]
  - THROMBOSIS [None]
